FAERS Safety Report 7636758-8 (Version None)
Quarter: 2011Q3

REPORT INFORMATION
  Report Type: 
  Country: None (occurrence: None)
  Receive Date: 20110719
  Receipt Date: 20110711
  Transmission Date: 20111222
  Serious: Yes (Death)
  Sender: FDA-Public Use
  Company Number: 201110869

PATIENT
  Age: 33 Year
  Sex: Female

DRUGS (5)
  1. LIORESAL [Suspect]
     Indication: MUSCLE SPASTICITY
     Dosage: MCG, DAILY, INTRATHECAL
     Route: 037
  2. DILAUDID [Concomitant]
  3. DROPERIDOL [Concomitant]
  4. CLONIDINE [Concomitant]
  5. BUPIVACAINE HCL [Concomitant]

REACTIONS (1)
  - DEATH [None]
